FAERS Safety Report 8275838-3 (Version None)
Quarter: 2012Q2

REPORT INFORMATION
  Report Type: 
  Country: None (occurrence: None)
  Receive Date: 20120410
  Receipt Date: 20120410
  Transmission Date: 20120825
  Serious: Yes (Hospitalization)
  Sender: FDA-Public Use
  Company Number: None

PATIENT
  Sex: Female
  Weight: 48.37 kg

DRUGS (2)
  1. CARBOPLATIN [Suspect]
     Dosage: 332 MG
     Dates: start: 20120329
  2. TAXOL [Suspect]
     Dosage: 255 MG
     Dates: end: 20120329

REACTIONS (8)
  - DIARRHOEA [None]
  - NAUSEA [None]
  - VIRAL INFECTION [None]
  - SMALL INTESTINAL OBSTRUCTION [None]
  - ABDOMINAL PAIN [None]
  - DEHYDRATION [None]
  - BLOOD CREATININE INCREASED [None]
  - HAEMOGLOBIN DECREASED [None]
